FAERS Safety Report 21842342 (Version 1)
Quarter: 2023Q1

REPORT INFORMATION
  Report Type: Spontaneous
  Country: US (occurrence: None)
  Receive Date: 20230109
  Receipt Date: 20230109
  Transmission Date: 20230417
  Serious: No
  Sender: FDA-Public Use
  Company Number: None

PATIENT
  Age: 48 Year
  Sex: Female

DRUGS (1)
  1. AMBRISENTAN [Suspect]
     Active Substance: AMBRISENTAN
     Indication: Pulmonary arterial hypertension
     Dosage: 5MG QD ORAL
     Route: 048
     Dates: start: 20221116, end: 20221218

REACTIONS (2)
  - Acute respiratory failure [None]
  - Right ventricular failure [None]

NARRATIVE: CASE EVENT DATE: 20221218
